FAERS Safety Report 5626163-8 (Version None)
Quarter: 2008Q1

REPORT INFORMATION
  Report Type: 
  Country: None (occurrence: None)
  Receive Date: 20080214
  Receipt Date: 20080205
  Transmission Date: 20080703
  Serious: Yes (Other)
  Sender: FDA-Public Use
  Company Number: US-ROCHE-545925

PATIENT
  Age: 46 Year
  Sex: Female

DRUGS (2)
  1. PEG-INTERFERON A-2A (RO 25-8310) [Suspect]
     Route: 065
     Dates: start: 20070814, end: 20080205
  2. RIBAVIRIN [Suspect]
     Dosage: THE PATIENT WAS TAKING RIBAVIRIN EVERYDAY.
     Route: 065
     Dates: start: 20070814, end: 20080205

REACTIONS (1)
  - EYEBALL RUPTURE [None]
